FAERS Safety Report 6109381-4 (Version None)
Quarter: 2009Q1

REPORT INFORMATION
  Report Type: 
  Country: None (occurrence: None)
  Receive Date: 20090310
  Receipt Date: 20090303
  Transmission Date: 20090719
  Serious: Yes (Other)
  Sender: FDA-Public Use
  Company Number: A0771151A

PATIENT
  Age: 22 Year
  Sex: Female

DRUGS (7)
  1. PAXIL [Suspect]
     Indication: PANIC DISORDER
     Dosage: 10MG PER DAY
     Route: 048
     Dates: start: 19960101
  2. PAROXETINE HCL [Suspect]
     Indication: PANIC DISORDER
     Dosage: 10MG PER DAY
     Route: 048
     Dates: start: 20060101, end: 20060101
  3. PAXIL [Suspect]
     Dosage: 25MG PER DAY
     Route: 048
     Dates: start: 20060301
  4. KLONOPIN [Suspect]
     Dosage: .5MG PER DAY
     Dates: start: 20060101
  5. BIRTH CONTROL [Suspect]
  6. PROGESTERONE [Concomitant]
  7. ATIVAN [Concomitant]

REACTIONS (18)
  - AFFECT LABILITY [None]
  - ANGER [None]
  - ASTHENIA [None]
  - CONSTIPATION [None]
  - CRYING [None]
  - DIZZINESS [None]
  - DRUG INEFFECTIVE [None]
  - DYSMENORRHOEA [None]
  - INCORRECT DOSE ADMINISTERED [None]
  - IRRITABILITY [None]
  - LIBIDO DECREASED [None]
  - MOOD ALTERED [None]
  - NAUSEA [None]
  - NERVOUSNESS [None]
  - PREMENSTRUAL SYNDROME [None]
  - TREMOR [None]
  - VIOLENCE-RELATED SYMPTOM [None]
  - WEIGHT INCREASED [None]
